FAERS Safety Report 21001647 (Version 3)
Quarter: 2023Q1

REPORT INFORMATION
  Report Type: Spontaneous
  Country: US (occurrence: US)
  Receive Date: 20220624
  Receipt Date: 20230208
  Transmission Date: 20230418
  Serious: Yes (Other)
  Sender: FDA-Public Use
  Company Number: US-BRISTOL-MYERS SQUIBB COMPANY-2022-057116

PATIENT
  Age: 77 Year
  Sex: Female

DRUGS (3)
  1. SPRYCEL [Suspect]
     Active Substance: DASATINIB
     Indication: Chronic myeloid leukaemia
     Route: 048
     Dates: start: 20220120
  2. SPRYCEL [Suspect]
     Active Substance: DASATINIB
     Indication: Type 2 diabetes mellitus
     Dosage: DAILY
     Route: 048
     Dates: start: 20220901
  3. ASPIRIN [Suspect]
     Active Substance: ASPIRIN
     Indication: Product used for unknown indication

REACTIONS (7)
  - Fatigue [Unknown]
  - Diarrhoea [Unknown]
  - Pulmonary oedema [Unknown]
  - Epistaxis [Recovered/Resolved]
  - Haematochezia [Recovered/Resolved]
  - Alopecia [Unknown]
  - Hair texture abnormal [Unknown]
